FAERS Safety Report 17526140 (Version 1)
Quarter: 2020Q1

REPORT INFORMATION
  Report Type: Spontaneous
  Country: GB (occurrence: GB)
  Receive Date: 20200311
  Receipt Date: 20200311
  Transmission Date: 20200409
  Serious: Yes (Other)
  Sender: FDA-Public Use
  Company Number: GB-ACCORD-175233

PATIENT
  Age: 64 Year
  Sex: Male

DRUGS (4)
  1. FENTANYL/FENTANYL CITRATE [Suspect]
     Active Substance: FENTANYL
     Indication: BIOPSY RECTUM
     Dates: start: 20191011
  2. ONDANSETRON [Suspect]
     Active Substance: ONDANSETRON
     Indication: BIOPSY RECTUM
     Dates: start: 20191011
  3. AMOXICILLIN/CLAVULANIC ACID [Suspect]
     Active Substance: AMOXICILLIN\CLAVULANIC ACID
     Indication: BIOPSY RECTUM
     Dates: start: 20191011
  4. PROPOFOL. [Suspect]
     Active Substance: PROPOFOL
     Indication: INDUCTION OF ANAESTHESIA
     Dates: start: 20191011

REACTIONS (4)
  - Pulse absent [Recovered/Resolved]
  - Off label use [Unknown]
  - Oxygen saturation immeasurable [Recovered/Resolved]
  - Hypotension [Recovered/Resolved]

NARRATIVE: CASE EVENT DATE: 20191011
